FAERS Safety Report 12889073 (Version 2)
Quarter: 2016Q4

REPORT INFORMATION
  Report Type: Spontaneous
  Country: US (occurrence: US)
  Receive Date: 20161027
  Receipt Date: 20161111
  Transmission Date: 20170207
  Serious: Yes (Death, Other)
  Sender: FDA-Public Use
  Company Number: US-PFIZER INC-2016494998

PATIENT
  Sex: Male

DRUGS (1)
  1. ATORVASTATIN CALCIUM. [Suspect]
     Active Substance: ATORVASTATIN CALCIUM
     Indication: TYPE IIA HYPERLIPIDAEMIA
     Dosage: 20 MG, UNK

REACTIONS (8)
  - Somnambulism [Unknown]
  - Cognitive disorder [Recovering/Resolving]
  - Gun shot wound [Fatal]
  - Depression [Recovering/Resolving]
  - Completed suicide [Fatal]
  - Anxiety [Recovering/Resolving]
  - Attention deficit/hyperactivity disorder [Recovering/Resolving]
  - Nightmare [Recovering/Resolving]
